FAERS Safety Report 10720488 (Version 10)
Quarter: 2015Q4

REPORT INFORMATION
  Report Type: Report from Study
  Country: CA (occurrence: CA)
  Receive Date: 20150119
  Receipt Date: 20151118
  Transmission Date: 20160304
  Serious: Yes (Death, Hospitalization, Other)
  Sender: FDA-Public Use
  Company Number: PHHY2014CA152969

PATIENT
  Age: 55 Year
  Sex: Female

DRUGS (2)
  1. SANDOSTATIN [Suspect]
     Active Substance: OCTREOTIDE ACETATE
     Indication: CARCINOID TUMOUR
     Dosage: 100 UG, TID (FOR 2 WEEKS)
     Route: 058
     Dates: start: 20141007, end: 20141021
  2. SANDOSTATIN LAR DEPOT [Suspect]
     Active Substance: OCTREOTIDE ACETATE
     Indication: CARCINOID TUMOUR
     Dosage: 30 MG, QMO (EVERY 4 WEEKS)
     Route: 030
     Dates: start: 20141021, end: 20151016

REACTIONS (12)
  - Pain [Recovering/Resolving]
  - Heart rate increased [Unknown]
  - Blood pressure systolic increased [Unknown]
  - Fatigue [Unknown]
  - Malaise [Unknown]
  - Peripheral swelling [Recovering/Resolving]
  - Pneumonia [Recovering/Resolving]
  - Spinal pain [Unknown]
  - Body temperature decreased [Unknown]
  - Death [Fatal]
  - Blood pressure increased [Unknown]
  - Musculoskeletal pain [Unknown]

NARRATIVE: CASE EVENT DATE: 2014
